FAERS Safety Report 6027517-0 (Version None)
Quarter: 2009Q1

REPORT INFORMATION
  Report Type: 
  Country: None (occurrence: None)
  Receive Date: 20090105
  Receipt Date: 20081229
  Transmission Date: 20090719
  Serious: Yes (Other)
  Sender: FDA-Public Use
  Company Number: GR-ROCHE-579601

PATIENT
  Age: 28 Year
  Sex: Female
  Weight: 48 kg

DRUGS (4)
  1. PEGASYS [Suspect]
     Indication: HEPATITIS C RNA POSITIVE
     Dosage: STRENGTH AND FORMULATION : INJ SOL 180 MCG/VIAL.
     Route: 058
     Dates: start: 20070801, end: 20080508
  2. YASMIN [Concomitant]
  3. DESFERAL [Concomitant]
  4. ONE-ALPHA [Concomitant]

REACTIONS (1)
  - ANAEMIA HAEMOLYTIC AUTOIMMUNE [None]
